FAERS Safety Report 5360634-7 (Version None)
Quarter: 2007Q2

REPORT INFORMATION
  Report Type: 
  Country: None (occurrence: None)
  Receive Date: 20070618
  Receipt Date: 20070608
  Transmission Date: 20071010
  Serious: Yes (Death, Hospitalization, Other)
  Sender: FDA-Public Use
  Company Number: CHWYE816808JUN07

PATIENT
  Age: 71 Year
  Sex: Female

DRUGS (12)
  1. TAZOBAC [Suspect]
     Indication: PNEUMONIA BACTERIAL
     Route: 042
     Dates: start: 20070326, end: 20070404
  2. TRIATEC [Suspect]
     Route: 048
     Dates: start: 20070331, end: 20070413
  3. DURAGESIC-100 [Concomitant]
     Dosage: TRANSDERMAL
     Route: 062
  4. HALDOL [Concomitant]
     Route: 048
  5. NEXIUM [Concomitant]
     Route: 048
     Dates: start: 20070408, end: 20070411
  6. FRAGMIN [Concomitant]
     Dosage: UNSPECIFIED
     Route: 058
     Dates: start: 20070325
  7. TORSEMIDE [Concomitant]
     Route: 048
     Dates: start: 20070330
  8. POTASSIUM CHLORIDE [Concomitant]
     Dosage: UNSPECIFIED
     Route: 048
     Dates: start: 20070327
  9. DAFALGAN [Concomitant]
     Route: 048
     Dates: start: 20070406, end: 20070413
  10. ZOFRAN [Concomitant]
     Route: 048
     Dates: start: 20070408, end: 20070412
  11. AUGMENTIN '125' [Suspect]
     Indication: PNEUMONIA BACTERIAL
     Route: 042
     Dates: start: 20070325, end: 20070326
  12. SERESTA [Concomitant]
     Route: 048

REACTIONS (4)
  - BREAST CANCER METASTATIC [None]
  - CHOLESTASIS [None]
  - CONCOMITANT DISEASE PROGRESSION [None]
  - SINUS TACHYCARDIA [None]
